FAERS Safety Report 20159689 (Version 1)
Quarter: 2021Q4

REPORT INFORMATION
  Report Type: Spontaneous
  Country: US (occurrence: US)
  Receive Date: 20211208
  Receipt Date: 20211208
  Transmission Date: 20220303
  Serious: Yes (Disabling)
  Sender: FDA-Public Use
  Company Number: US-PROCTER+GAMBLE-PH21010596

PATIENT
  Age: 48 Year
  Sex: Female

DRUGS (1)
  1. CAMPHOR (SYNTHETIC)\EUCALYPTUS OIL\MENTHOL [Suspect]
     Active Substance: CAMPHOR (SYNTHETIC)\EUCALYPTUS OIL\MENTHOL
     Dosage: 1 TABLET, 1 ONLY
     Route: 061
     Dates: start: 20211107, end: 20211107

REACTIONS (2)
  - Limb injury [Recovering/Resolving]
  - Fall [Unknown]

NARRATIVE: CASE EVENT DATE: 20211108
